FAERS Safety Report 15710700 (Version 3)
Quarter: 2019Q1

REPORT INFORMATION
  Report Type: Report from Study
  Country: ZA (occurrence: ZA)
  Receive Date: 20181211
  Receipt Date: 20190123
  Transmission Date: 20190417
  Serious: Yes (Hospitalization)
  Sender: FDA-Public Use
  Company Number: ZA-SAKK-2018SA328146AA

PATIENT
  Age: 82 Year
  Sex: Male

DRUGS (7)
  1. NO STUDY DRUG GIVEN [Suspect]
     Active Substance: UNSPECIFIED INGREDIENT
     Dosage: UNK
  2. OPTISULIN (INSULIN GLARGINE) [Suspect]
     Active Substance: INSULIN GLARGINE
     Dosage: (24UNITS BEFORE BREAKFAST AND 24 UNITS AT BEDTIME), BID
  3. PREDNISONE. [Concomitant]
     Active Substance: PREDNISONE
     Dosage: 2.5 MG BEFORE BREAKFAST, QD
     Dates: start: 20181127
  4. LYRICA [Concomitant]
     Active Substance: PREGABALIN
     Dosage: 25 MG(ONCE BEFORE BREAKFAST AND ONCE BEFORE SUPPER), BID
     Dates: start: 20181128
  5. METFORMIN [Concomitant]
     Active Substance: METFORMIN HYDROCHLORIDE
     Dosage: (500MG BEFORE BREAKFAST AND 500 MG BEFORE SUPPER)
     Dates: start: 20081128
  6. CORALAN [Concomitant]
     Active Substance: IVABRADINE HYDROCHLORIDE
     Dosage: 7.5 MG(BEFORE BREAKFAST), QD
     Dates: start: 20181128
  7. FERRIMED [FERRIC HYDROXIDE POLYMALTOSE COMPLEX] [Concomitant]
     Active Substance: IRON POLYMALTOSE
     Dosage: 50 MG(ONCE BEFORE BREAKFAST AND ONCE BEFORE SUPPER) , BID
     Dates: start: 20181128

REACTIONS (6)
  - Pneumonia [Not Recovered/Not Resolved]
  - Hyperglycaemia [Not Recovered/Not Resolved]
  - Blood glucose fluctuation [Unknown]
  - Intentional dose omission [Unknown]
  - Off label use [Unknown]
  - Hospitalisation [Unknown]

NARRATIVE: CASE EVENT DATE: 20181112
